FAERS Safety Report 15622198 (Version 1)
Quarter: 2018Q4

REPORT INFORMATION
  Report Type: Spontaneous
  Country: PT (occurrence: PT)
  Receive Date: 20181115
  Receipt Date: 20181115
  Transmission Date: 20190205
  Serious: Yes (Other)
  Sender: FDA-Public Use
  Company Number: PT-ALIMERA SCIENCES LIMITED-PT-IL-2018-004119

PATIENT

DRUGS (2)
  1. RANIBIZUMAB. [Concomitant]
     Active Substance: RANIBIZUMAB
     Indication: DIABETIC RETINAL OEDEMA
     Dosage: PRN REGIMEN, 7 INJECTION
     Route: 031
  2. ILUVIEN [Suspect]
     Active Substance: FLUOCINOLONE ACETONIDE
     Indication: DIABETIC RETINAL OEDEMA
     Dosage: 0.25 ?G, QD - RIGHT EYE
     Route: 031
     Dates: start: 201707

REACTIONS (3)
  - Lens extraction [Recovered/Resolved]
  - Diabetic retinal oedema [Recovered/Resolved]
  - Condition aggravated [Recovered/Resolved]

NARRATIVE: CASE EVENT DATE: 201807
